FAERS Safety Report 10373889 (Version 1)
Quarter: 2014Q1

REPORT INFORMATION
  Report Type: Spontaneous
  Country: US (occurrence: None)
  Receive Date: 20140306
  Receipt Date: 20140306
  Transmission Date: 20141002
  Serious: Yes (Other)
  Sender: FDA-Public Use
  Company Number: 163-21880-13074271

PATIENT
  Age: 78 Year
  Sex: Male

DRUGS (1)
  1. REVLIMID [Suspect]
     Indication: PLASMA CELL MYELOMA
     Dosage: 11-JUL-2013 - DISCONTINUED?10 MG, 21 IN 28 D, PO
     Route: 048
     Dates: start: 20130711

REACTIONS (4)
  - Hypersensitivity [None]
  - Drug intolerance [None]
  - Malaise [None]
  - Drug ineffective [None]
